FAERS Safety Report 5917330-4 (Version None)
Quarter: 2008Q4

REPORT INFORMATION
  Report Type: 
  Country: None (occurrence: None)
  Receive Date: 20081014
  Receipt Date: 20081002
  Transmission Date: 20090506
  Serious: Yes (Hospitalization)
  Sender: FDA-Public Use
  Company Number: MX-JNJFOC-20081001094

PATIENT
  Age: 82 Year
  Sex: Male

DRUGS (6)
  1. INFLIXIMAB [Suspect]
     Indication: DERMATOSIS
     Route: 042
  2. CORTICOIDS [Concomitant]
     Indication: DERMATOSIS
  3. SULFALAZINE [Concomitant]
     Indication: DERMATOSIS
  4. OMEPRAZOLE [Concomitant]
     Indication: DERMATOSIS
  5. PREDNISONE [Concomitant]
     Indication: DERMATOSIS
  6. TALIDOMIDE [Concomitant]
     Indication: DERMATOSIS

REACTIONS (3)
  - DIVERTICULITIS [None]
  - PYODERMA GANGRENOSUM [None]
  - SEPTIC SHOCK [None]
